FAERS Safety Report 14233731 (Version 14)
Quarter: 2019Q2

REPORT INFORMATION
  Report Type: Report from Study
  Country: GB (occurrence: GB)
  Receive Date: 20171129
  Receipt Date: 20190503
  Transmission Date: 20190711
  Serious: Yes (Hospitalization, Other)
  Sender: FDA-Public Use
  Company Number: GB-ASPEN-GLO2017GB007741

PATIENT
  Age: 82 Year
  Sex: Female
  Weight: 77.4 kg

DRUGS (52)
  1. DEXAMETHASONE. [Suspect]
     Active Substance: DEXAMETHASONE
     Dosage: 4 MG, CYCLICAL (DAYS 1, 2, 8, 9, 15, 16, 22 AND 23 OF EACH 35-DAY CYCLE FOR CYCLES 9 AND BEYOND);
     Route: 048
  2. VELCADE [Suspect]
     Active Substance: BORTEZOMIB
     Dosage: 1.15 MG/M2, CYCLICAL (DAYS 1,4, 8, 15 AND 22 OF EACH 35-DAY CYCLE FOR CYCLES 9 AND BEYOND);
     Route: 058
  3. GABAPENTIN. [Concomitant]
     Active Substance: GABAPENTIN
     Indication: BURSITIS
     Dosage: 300 MG, TID
     Route: 048
     Dates: start: 20161117
  4. EPOETIN [Concomitant]
     Active Substance: ERYTHROPOIETIN
     Indication: ANAEMIA
     Dosage: 30000 DF, WEEKLY
     Route: 058
     Dates: start: 20160901, end: 20161117
  5. VENETOCLAX. [Suspect]
     Active Substance: VENETOCLAX
     Dosage: 1 DF, QD
     Route: 048
     Dates: start: 20170331, end: 20170607
  6. ASPIRIN. [Concomitant]
     Active Substance: ASPIRIN
     Indication: THROMBOSIS PROPHYLAXIS
     Dosage: 75 MG, QD
     Route: 048
     Dates: start: 20150529
  7. ASPIRIN. [Concomitant]
     Active Substance: ASPIRIN
     Indication: PROPHYLAXIS
  8. OXYBUTYNIN. [Concomitant]
     Active Substance: OXYBUTYNIN CHLORIDE
     Indication: INCONTINENCE
     Dosage: 2.5 MG, BID
     Route: 048
     Dates: start: 20160602
  9. VENETOCLAX. [Suspect]
     Active Substance: VENETOCLAX
     Dosage: 1 DF, QD
     Route: 048
     Dates: start: 20170630, end: 20171026
  10. VELCADE [Suspect]
     Active Substance: BORTEZOMIB
     Dosage: 1.3 MG/M2 CYCLICAL (DAYS 1, 8, 15 AND 22 OF EACH 35-DAY CYCLE FOR CYCLES 9 AND BEYOND);
     Route: 058
  11. VELCADE [Suspect]
     Active Substance: BORTEZOMIB
     Dosage: 1.8 MG/M2 CYCLICAL (DAYS 1, 8, 15 AND 22 OF EACH 35-DAY CYCLE FOR CYCLES 9 AND BEYOND);
     Route: 058
  12. VELCADE [Suspect]
     Active Substance: BORTEZOMIB
     Dosage: 1.8 MG/M2 DAYS 1, 4, 8, AND 11 OF EACH 21 DAY CYCLE FOR CYCLES 1-8
     Route: 058
  13. ERYTHROPOIETIN [Concomitant]
     Active Substance: ERYTHROPOIETIN
     Dosage: 30000 U, WEEKLY
     Route: 058
     Dates: start: 20160901, end: 20161117
  14. DOXAZOSIN [Concomitant]
     Active Substance: DOXAZOSIN\DOXAZOSIN MESYLATE
     Indication: HYPERTENSION
     Dosage: 4 MG, BID
     Route: 048
     Dates: start: 20080211
  15. FUROSEMIDE. [Concomitant]
     Active Substance: FUROSEMIDE
     Dosage: 40 MG, BID
     Route: 048
     Dates: start: 201702, end: 20170207
  16. ACETAMINOPHEN W/CODEINE PHOSPHATE [Concomitant]
     Active Substance: ACETAMINOPHEN\CODEINE PHOSPHATE
     Indication: HEADACHE
     Dosage: 32 MG, QD
     Route: 048
     Dates: start: 20170729
  17. VELCADE [Suspect]
     Active Substance: BORTEZOMIB
     Dosage: UNK CYCLICAL (DAYS 1, 8, 15 AND 22 OF EACH 35-DAY CYCLE FOR CYCLES 9 AND BEYOND);
     Route: 058
  18. VELCADE [Suspect]
     Active Substance: BORTEZOMIB
     Dosage: 1.3 MG/M2, CYCLICAL (DAYS 1, 8, 15 AND 22 OF EACH 35-DAY CYCLE FOR CYCLES 9 AND BEYOND);
     Route: 058
  19. POTASSIUM [Concomitant]
     Active Substance: POTASSIUM
     Indication: BLOOD POTASSIUM DECREASED
     Dosage: UNK
     Route: 048
  20. FUROSEMIDE. [Concomitant]
     Active Substance: FUROSEMIDE
     Indication: OEDEMA PERIPHERAL
     Dosage: 40 MG, QD
     Route: 048
     Dates: start: 20170208
  21. PARACETAMOL [Concomitant]
     Active Substance: ACETAMINOPHEN
     Indication: HEADACHE
     Dosage: 500 MG, QD
     Route: 048
     Dates: start: 20170729
  22. DEXAMETHASONE. [Suspect]
     Active Substance: DEXAMETHASONE
     Dosage: 12 MG CYCLICAL (DAYS 1, 2, 4, 5, 8, 9, 11 AND 12 OF EACH 21-DAY CYCLE FOR CYCLES 1-8)
     Route: 048
     Dates: start: 20170407, end: 20170429
  23. DEXAMETHASONE. [Suspect]
     Active Substance: DEXAMETHASONE
     Dosage: 20 MG ON DAYS 1, 2, 8, 9, 15, 16, 22 AND 23 OF EACH 35-DAY CYCLE
     Route: 048
     Dates: start: 20170106, end: 20170117
  24. DEXAMETHASONE. [Suspect]
     Active Substance: DEXAMETHASONE
     Dosage: 12 MG, CYCLICAL (DAYS 1, 2, 4, 5, 8, 9, 11 AND 12 OF EACH 21-DAY CYCLE FOR CYCLES 1-8)
     Route: 048
  25. DEXAMETHASONE. [Suspect]
     Active Substance: DEXAMETHASONE
     Dosage: 8 MG CYCLICAL (DAYS 1, 2, 4, 5, 8, 9, 11 AND 12 OF EACH 21-DAY CYCLE FOR CYCLES 1-8)
     Route: 048
     Dates: start: 20170512, end: 20170613
  26. VENETOCLAX. [Suspect]
     Active Substance: VENETOCLAX
     Dosage: 1 DF, QD
     Route: 048
     Dates: start: 20170211, end: 20170309
  27. VENETOCLAX. [Suspect]
     Active Substance: VENETOCLAX
     Dosage: 1 DF, QD
     Route: 048
     Dates: start: 20171110
  28. VELCADE [Suspect]
     Active Substance: BORTEZOMIB
     Indication: PLASMA CELL MYELOMA
     Dosage: UNKNOWN, CYCLICAL (DAYS 1, 8, 15 AND 22 OF EACH 35-DAY CYCLE FOR CYCLES 9 AND BEYOND);
     Route: 058
  29. VELCADE [Suspect]
     Active Substance: BORTEZOMIB
     Dosage: UNK, CYCLICAL (DAYS 1, 8, 15 AND 22 OF EACH 35-DAY CYCLE FOR CYCLES 9 AND BEYOND);
     Route: 058
  30. VELCADE [Suspect]
     Active Substance: BORTEZOMIB
     Dosage: 2.3 MG/M2, CYCLICAL (DAYS 1, 8, 15 AND 22 OF EACH 35-DAY CYCLE FOR CYCLES 9 AND BEYOND);
     Route: 058
  31. VELCADE [Suspect]
     Active Substance: BORTEZOMIB
     Dosage: 1.15 MG/M2. DAYS 1, 4, 8, AND 11 OF EACH 21 DAY CYCLE FOR CYCLES 1-8
     Route: 058
  32. VELCADE [Suspect]
     Active Substance: BORTEZOMIB
     Dosage: 2.3 MG/M2 DAYS 1, 4, 8, AND 11 OF EACH 21 DAY CYCLE FOR CYCLES 1-8
     Route: 058
  33. LOPERAMIDE [Concomitant]
     Active Substance: LOPERAMIDE
     Indication: DIARRHOEA
     Dosage: 2 MG, PRN
     Route: 048
     Dates: start: 20170512
  34. ERYTHROPOIETIN [Concomitant]
     Active Substance: ERYTHROPOIETIN
     Indication: ANAEMIA
     Dosage: 12000 U, WEEKLY
     Route: 058
     Dates: start: 20161118
  35. LEKOVIT CA [Concomitant]
     Active Substance: CALCIUM CARBONATE\CHOLECALCIFEROL
     Indication: PROPHYLAXIS
     Dosage: 1 DF, QD
     Route: 048
     Dates: start: 20101202
  36. DEXAMETHASONE. [Suspect]
     Active Substance: DEXAMETHASONE
     Dosage: 8 MG, CYCLICAL (DAYS 1, 2, 8, 9, 15, 16, 22 AND 23 OF EACH 35-DAY CYCLE FOR CYCLES 9 AND BEYOND);
     Route: 048
  37. DOXAZOSIN [Concomitant]
     Active Substance: DOXAZOSIN\DOXAZOSIN MESYLATE
     Indication: ORTHOSTATIC HYPOTENSION
  38. COCODAMOL [Concomitant]
     Active Substance: ACETAMINOPHEN\CODEINE PHOSPHATE
     Indication: HEADACHE
     Dosage: 32 MG, QD
     Route: 048
     Dates: start: 20170729
  39. DEXAMETHASONE. [Suspect]
     Active Substance: DEXAMETHASONE
     Dosage: 12 MG
     Route: 048
  40. AMLODIPINE BESILATE [Concomitant]
     Active Substance: AMLODIPINE BESYLATE
     Indication: HYPERTENSION
     Dosage: 10 MG, QD
     Route: 048
     Dates: start: 20161102
  41. LANSOPRAZOLE. [Concomitant]
     Active Substance: LANSOPRAZOLE
     Indication: HIATUS HERNIA
     Dosage: 30 MG, BID
     Route: 048
     Dates: start: 20130815
  42. DOMPERIDONE MALEATE [Concomitant]
     Active Substance: DOMPERIDONE MALEATE
     Indication: NAUSEA
     Dosage: 10 MG, TID
     Route: 048
     Dates: start: 20170109, end: 20170223
  43. DOMPERIDONE MALEATE [Concomitant]
     Active Substance: DOMPERIDONE MALEATE
     Indication: PROPHYLAXIS OF NAUSEA AND VOMITING
     Dosage: 10 MG, QD
     Route: 048
     Dates: start: 20170224
  44. OSELTAMIVIR PHOSPHATE. [Concomitant]
     Active Substance: OSELTAMIVIR PHOSPHATE
     Indication: INFLUENZA
     Dosage: 75 MG, BID
     Route: 048
     Dates: start: 20170330
  45. PAMIDRONATE [Concomitant]
     Active Substance: PAMIDRONATE DISODIUM
     Indication: BONE DISORDER
     Dosage: 30 MG, QD
     Route: 042
     Dates: start: 20170728
  46. DEXAMETHASONE. [Suspect]
     Active Substance: DEXAMETHASONE
     Indication: PLASMA CELL MYELOMA
     Dosage: 8 MG, CYCLICAL (DAYS 1, 2, 4, 5, 8, 9, 11 AND 12 OF EACH 21-DAY CYCLE FOR CYCLES 1-8);
     Route: 048
  47. DEXAMETHASONE. [Suspect]
     Active Substance: DEXAMETHASONE
     Dosage: 12 MG CYCLICAL (DAYS 1, 2, 4, 5, 8, 9, 11 AND 12 OF
     Route: 048
     Dates: start: 20170217, end: 20170228
  48. DEXAMETHASONE. [Suspect]
     Active Substance: DEXAMETHASONE
     Dosage: 20 MG
     Route: 048
  49. VENETOCLAX. [Suspect]
     Active Substance: VENETOCLAX
     Indication: PLASMA CELL MYELOMA
     Dosage: 1 DF, QD
     Route: 048
     Dates: start: 20170106, end: 20170124
  50. PANADEINE CO [Concomitant]
     Active Substance: ACETAMINOPHEN\CODEINE PHOSPHATE
     Indication: HEADACHE
     Dosage: 8 MG, QID
     Route: 048
  51. EPOETIN [Concomitant]
     Active Substance: ERYTHROPOIETIN
     Dosage: 12000 DF, 1 DOSE WEEKLY
     Route: 058
     Dates: start: 20161118
  52. PAMIDRONATE [Concomitant]
     Active Substance: PAMIDRONATE DISODIUM
     Indication: HEADACHE
     Dosage: 32 MG, QD
     Route: 042
     Dates: start: 20170729

REACTIONS (4)
  - Lung infection [Recovered/Resolved]
  - Infection [Recovered/Resolved]
  - Lower respiratory tract infection [Recovered/Resolved]
  - Anaemia [Recovered/Resolved]

NARRATIVE: CASE EVENT DATE: 20171026
